FAERS Safety Report 4384207-8 (Version None)
Quarter: 2004Q2

REPORT INFORMATION
  Report Type: 
  Country: None (occurrence: None)
  Receive Date: 20040621
  Receipt Date: 20040614
  Transmission Date: 20050107
  Serious: Yes (Hospitalization)
  Sender: FDA-Public Use
  Company Number: TPA2004A00727

PATIENT
  Age: 51 Year
  Sex: Female
  Weight: 99.7913 kg

DRUGS (10)
  1. ACTOS [Suspect]
     Indication: DIABETES MELLITUS NON-INSULIN-DEPENDENT
     Dosage: 30 MG, 1 IN 1 D, PER ORAL
     Route: 048
     Dates: end: 20040410
  2. ACTOS [Suspect]
  3. PLAVIX [Concomitant]
  4. GLYBURIDE [Concomitant]
  5. METFORMIN HCL [Concomitant]
  6. LANTUS [Concomitant]
  7. COREG [Concomitant]
  8. LISINOPRIL/HCTZ (PRINZIDE) [Concomitant]
  9. ZOCOR [Concomitant]
  10. ZETIA [Concomitant]

REACTIONS (4)
  - KIDNEY INFECTION [None]
  - MYOCARDIAL INFARCTION [None]
  - TOOTH DISORDER [None]
  - TOOTH INFECTION [None]
